FAERS Safety Report 24781179 (Version 1)
Quarter: 2024Q4

REPORT INFORMATION
  Report Type: Spontaneous
  Country: IT (occurrence: IT)
  Receive Date: 20241227
  Receipt Date: 20241227
  Transmission Date: 20250114
  Serious: Yes (Other)
  Sender: AMGEN
  Company Number: None

PATIENT
  Age: 5 Year
  Sex: Male
  Weight: 22 kg

DRUGS (3)
  1. BLINCYTO [Suspect]
     Active Substance: BLINATUMOMAB
     Indication: Acute lymphocytic leukaemia
     Dosage: 0.05 MILLIGRAM, CONTINUING, 15 MCG/M2/DAY IN CONTINUOUS INFUSION FOR 24 HOURS
     Route: 040
     Dates: start: 20241127, end: 20241202
  2. ESOMEPRAZOLE [Concomitant]
     Active Substance: ESOMEPRAZOLE
     Indication: Prophylaxis
     Dosage: 10 MILLIGRAM, QD
     Route: 048
     Dates: start: 20241111
  3. BACTRIM [Concomitant]
     Active Substance: SULFAMETHOXAZOLE\TRIMETHOPRIM
     Indication: Prophylaxis
     Dosage: 1/2 TABLET MORNING AND EVENING 1 DAY A WEEK
     Route: 048
     Dates: start: 20230329

REACTIONS (2)
  - Hypertransaminasaemia [Recovered/Resolved]
  - Hepatic cytolysis [Recovered/Resolved]

NARRATIVE: CASE EVENT DATE: 20241201
